FAERS Safety Report 11327967 (Version 1)
Quarter: 2015Q3

REPORT INFORMATION
  Report Type: Spontaneous
  Country: US (occurrence: US)
  Receive Date: 20150731
  Receipt Date: 20150731
  Transmission Date: 20151125
  Serious: No
  Sender: FDA-Public Use
  Company Number: US-TARO-2015TAR00135

PATIENT
  Age: 77 Year
  Sex: Male
  Weight: 99.77 kg

DRUGS (5)
  1. ALLOPURINOL. [Concomitant]
     Active Substance: ALLOPURINOL
     Dosage: 300 MG, 1X/DAY
  2. FLUOCINONIDE CREAM USP 0.05% [Suspect]
     Active Substance: FLUOCINONIDE
     Dosage: UNK, 1X/DAY
     Route: 061
     Dates: start: 20150205, end: 20150207
  3. PAROXETINE [Concomitant]
     Active Substance: PAROXETINE\PAROXETINE HYDROCHLORIDE
     Dosage: 25 MG, 1X/DAY
  4. SIMVASTATIN. [Concomitant]
     Active Substance: SIMVASTATIN
     Dosage: 40 MG, 1X/DAY
  5. HYDROCHLOROTHIAZIDE 6.25 MG/BISOPROLOL 5 MG [Concomitant]
     Dosage: 1 DOSAGE UNITS, 1X/DAY

REACTIONS (3)
  - Pruritus [Recovered/Resolved]
  - Rash [Recovering/Resolving]
  - Expired product administered [Recovered/Resolved]

NARRATIVE: CASE EVENT DATE: 201502
